FAERS Safety Report 23809459 (Version 1)
Quarter: 2024Q2

REPORT INFORMATION
  Report Type: Spontaneous
  Country: PT (occurrence: PT)
  Receive Date: 20240502
  Receipt Date: 20240502
  Transmission Date: 20240715
  Serious: Yes (Other)
  Sender: FDA-Public Use
  Company Number: None

PATIENT
  Age: 75 Year
  Sex: Female
  Weight: 51 kg

DRUGS (2)
  1. ULTRAVIST [Suspect]
     Active Substance: IOPROMIDE
     Indication: Computerised tomogram heart
     Dosage: 75 ML, ONCE
     Route: 042
     Dates: start: 20240415, end: 20240415
  2. LEVOTHYROXINE SODIUM [Concomitant]
     Active Substance: LEVOTHYROXINE SODIUM
     Indication: Autoimmune thyroiditis

REACTIONS (6)
  - Contrast media reaction [Recovered/Resolved]
  - Tongue eruption [Recovered/Resolved]
  - Dyspnoea [Recovered/Resolved]
  - Nasal obstruction [Recovered/Resolved]
  - Sneezing [Recovered/Resolved]
  - Papule [Recovered/Resolved]

NARRATIVE: CASE EVENT DATE: 20240415
